FAERS Safety Report 7647891-9 (Version None)
Quarter: 2011Q3

REPORT INFORMATION
  Report Type: 
  Country: None (occurrence: None)
  Receive Date: 20110801
  Receipt Date: 20110715
  Transmission Date: 20111222
  Serious: No
  Sender: FDA-Public Use
  Company Number: US-ABBOTT-11P-163-0804595-00

PATIENT
  Sex: Male
  Weight: 100 kg

DRUGS (4)
  1. ALL OTHER THERAPEUTIC PRODUCTS [Concomitant]
     Indication: GASTROOESOPHAGEAL REFLUX DISEASE
     Dosage: DAILY DOSE:  UNKNOWN, FREQUENCY: ONCE A DAY
     Route: 065
  2. CREON [Suspect]
     Dosage: DAILY DOSE:  UNKNOWN, AS USED:1200 UNITS, 4 CAPSULES WITH MEALS
     Route: 065
  3. CREON [Suspect]
     Indication: CYSTIC FIBROSIS
     Dosage: DAILY DOSE:  UNKNOWN, AS USED:1200 UNITS, 3 CAPSULES WITH MEALS
     Route: 065
  4. ALL OTHER THERAPEUTIC PRODUCTS [Concomitant]
     Dosage: DAILY DOSE:  UNKNOWN, FREQUENCY: TWICE A DAY
     Route: 065

REACTIONS (1)
  - CONSTIPATION [None]
